FAERS Safety Report 25381312 (Version 4)
Quarter: 2025Q3

REPORT INFORMATION
  Report Type: Spontaneous
  Country: JP (occurrence: JP)
  Receive Date: 20250530
  Receipt Date: 20250917
  Transmission Date: 20251020
  Serious: Yes (Death, Life-Threatening, Hospitalization)
  Sender: JAZZ
  Company Number: JP-JAZZ PHARMACEUTICALS-2025-JP-013822

PATIENT
  Age: 46 Year
  Sex: Female

DRUGS (9)
  1. VYXEOS [Suspect]
     Active Substance: CYTARABINE\DAUNORUBICIN
     Indication: Acute myeloid leukaemia
  2. VYXEOS [Suspect]
     Active Substance: CYTARABINE\DAUNORUBICIN
  3. VORICONAZOLE [Concomitant]
     Active Substance: VORICONAZOLE
     Indication: Product used for unknown indication
  4. CEFEPIME HYDROCHLORIDE [Concomitant]
     Active Substance: CEFEPIME HYDROCHLORIDE
     Indication: Product used for unknown indication
  5. VANCOMYCIN HYDROCHLORIDE [Concomitant]
     Active Substance: VANCOMYCIN HYDROCHLORIDE
     Indication: Product used for unknown indication
  6. NOXAFIL [Concomitant]
     Active Substance: POSACONAZOLE
     Indication: Product used for unknown indication
  7. LEVOFLOXACIN HEMIHYDRATE [Concomitant]
     Active Substance: LEVOFLOXACIN
     Indication: Product used for unknown indication
  8. TEICOPLANIN [Concomitant]
     Active Substance: TEICOPLANIN
     Indication: Product used for unknown indication
  9. PREDNISOLONE [Concomitant]
     Active Substance: PREDNISOLONE
     Indication: Product used for unknown indication

REACTIONS (9)
  - Cardiac failure [Fatal]
  - Renal failure [Fatal]
  - Acute myeloid leukaemia [Fatal]
  - Staphylococcal bacteraemia [Unknown]
  - Erythema multiforme [Unknown]
  - Diverticulitis [Unknown]
  - Pneumonia [Unknown]
  - Musculoskeletal chest pain [Recovering/Resolving]
  - Chest pain [Recovering/Resolving]

NARRATIVE: CASE EVENT DATE: 20240819
